FAERS Safety Report 5850916-4 (Version None)
Quarter: 2008Q3

REPORT INFORMATION
  Report Type: 
  Country: None (occurrence: None)
  Receive Date: 20080819
  Receipt Date: 20080819
  Transmission Date: 20090109
  Serious: Yes (Other)
  Sender: FDA-Public Use
  Company Number: None

PATIENT
  Age: 51 Year
  Sex: Male
  Weight: 93.441 kg

DRUGS (1)
  1. SEROQUEL [Suspect]
     Indication: DEPRESSION
     Dosage: ONE TAB QHS OROPHARINGEAL
     Route: 049
     Dates: start: 20080701, end: 20080702

REACTIONS (2)
  - AMNESIA [None]
  - BLISTER [None]
